FAERS Safety Report 8428749-4 (Version None)
Quarter: 2012Q2

REPORT INFORMATION
  Report Type: 
  Country: None (occurrence: None)
  Receive Date: 20120612
  Receipt Date: 20120530
  Transmission Date: 20120825
  Serious: Yes (Life-Threatening, Hospitalization)
  Sender: FDA-Public Use
  Company Number: FR-VERTEX PHARMACEUTICALS INC.-000000000000000595

PATIENT
  Sex: Female

DRUGS (11)
  1. PEGASYS [Concomitant]
     Indication: HEPATITIS C
     Dates: start: 20120405, end: 20120422
  2. FLUDROCORTISONE ACETATE [Concomitant]
     Indication: ADRENAL INSUFFICIENCY
  3. GLUCOPHAGE [Concomitant]
     Indication: DIABETES MELLITUS
  4. INCIVO [Suspect]
     Indication: HEPATITIS C
     Dosage: DOSAGE FORM: TABLET
  5. RAMIPRIL [Concomitant]
     Indication: HYPERTENSION
  6. ASPIRIN [Concomitant]
     Indication: CORONARY ARTERY DISEASE
  7. HYDROCORTISONE [Concomitant]
     Indication: ADRENAL INSUFFICIENCY
     Route: 048
  8. COPEGUS [Concomitant]
     Indication: HEPATITIS C
     Route: 048
     Dates: start: 20120405, end: 20120422
  9. PANTOPRAZOLE SODIUM [Concomitant]
     Indication: GASTROOESOPHAGEAL REFLUX DISEASE
  10. ESCITALOPRAM [Concomitant]
     Indication: DEPRESSION
  11. ZOPICLONE [Concomitant]
     Indication: INSOMNIA

REACTIONS (1)
  - CARDIAC ARREST [None]
